FAERS Safety Report 24580567 (Version 1)
Quarter: 2024Q4

REPORT INFORMATION
  Report Type: Spontaneous
  Country: US (occurrence: None)
  Receive Date: 20241104
  Receipt Date: 20241104
  Transmission Date: 20250114
  Serious: Yes (Life-Threatening, Hospitalization)
  Sender: Public
  Company Number: None

PATIENT
  Age: 33 Year
  Sex: Female
  Weight: 95.5 kg

DRUGS (1)
  1. IOPAMIDOL [Suspect]
     Active Substance: IOPAMIDOL
     Indication: X-ray
     Dosage: OTHER FREQUENCY : ONCE;?OTHER ROUTE : GJ-TUBE (ORAL);?
     Route: 050
     Dates: start: 20240919, end: 20240919

REACTIONS (5)
  - Contrast media allergy [None]
  - Throat irritation [None]
  - Swollen tongue [None]
  - Erythema [None]
  - Dyspnoea [None]

NARRATIVE: CASE EVENT DATE: 20240919
